FAERS Safety Report 6754822-2 (Version None)
Quarter: 2010Q2

REPORT INFORMATION
  Report Type: 
  Country: None (occurrence: None)
  Receive Date: 20100527
  Receipt Date: 20100521
  Transmission Date: 20101027
  Serious: Yes (Hospitalization)
  Sender: FDA-Public Use
  Company Number: 2009SP042816

PATIENT
  Age: 60 Year
  Sex: Male
  Weight: 93 kg

DRUGS (14)
  1. TEMOZOLOMIDE [Suspect]
     Indication: METASTATIC MALIGNANT MELANOMA
     Dosage: ; PO
     Route: 048
     Dates: start: 20090914
  2. ABT-888 (BLINDED) (INVESTIGATIONAL DRUG) [Suspect]
     Indication: METASTATIC MALIGNANT MELANOMA
     Dosage: 40 MG; BID; PO
     Route: 048
     Dates: start: 20090914
  3. CYCLIZINE [Concomitant]
  4. CODANTHRAMER [Concomitant]
  5. METOCLORPAMIDE [Concomitant]
  6. LACTULOSE [Concomitant]
  7. ONDANSETRON [Concomitant]
  8. STEMETIL /00013301/ [Concomitant]
  9. GABAPENTIN [Concomitant]
  10. AMYTRIPTYLINE [Concomitant]
  11. DOCUSATE SODIUM [Concomitant]
  12. ZOLPIDEM [Concomitant]
  13. OXYCODONE [Concomitant]
  14. CITALOPRAM [Concomitant]

REACTIONS (9)
  - DYSPHAGIA [None]
  - MUCOSAL INFLAMMATION [None]
  - NAUSEA [None]
  - NEUTROPENIA [None]
  - ORAL CANDIDIASIS [None]
  - OROPHARYNGEAL PAIN [None]
  - PRODUCTIVE COUGH [None]
  - PYREXIA [None]
  - VOMITING [None]
